FAERS Safety Report 9300159 (Version 1)
Quarter: 2013Q2

REPORT INFORMATION
  Report Type: Spontaneous
  Country: JP (occurrence: JP)
  Receive Date: 20130521
  Receipt Date: 20130521
  Transmission Date: 20140414
  Serious: Yes (Other)
  Sender: FDA-Public Use
  Company Number: JP-JNJFOC-20130410245

PATIENT
  Age: 83 Year
  Sex: Male

DRUGS (3)
  1. RISPERDAL [Suspect]
     Indication: DELIRIUM
     Route: 048
     Dates: start: 20130207, end: 20130412
  2. ZOLPIDEM TARTRATE [Concomitant]
     Route: 048
  3. INSULIN [Concomitant]
     Indication: DIABETES MELLITUS
     Route: 065

REACTIONS (2)
  - Extrapyramidal disorder [Unknown]
  - Pneumonia aspiration [Recovered/Resolved]
